FAERS Safety Report 12383664 (Version 1)
Quarter: 2016Q2

REPORT INFORMATION
  Report Type: Spontaneous
  Country: ID (occurrence: ID)
  Receive Date: 20160519
  Receipt Date: 20160519
  Transmission Date: 20160815
  Serious: Yes (Death)
  Sender: FDA-Public Use
  Company Number: ID-B.I. PHARMACEUTICALS,INC./RIDGEFIELD-2016-BI-31663IP

PATIENT

DRUGS (1)
  1. GILOTRIF [Suspect]
     Active Substance: AFATINIB
     Indication: PRODUCT USED FOR UNKNOWN INDICATION
     Dosage: DOSE PER APPLICATION AND DAILY DOSE: 40 OR 50 MILLIGRAMS;
     Route: 048

REACTIONS (4)
  - Mucosal inflammation [Unknown]
  - Lethargy [Unknown]
  - Diarrhoea [Unknown]
  - Infection [Fatal]
